FAERS Safety Report 4336751-7 (Version None)
Quarter: 2004Q1

REPORT INFORMATION
  Report Type: 
  Country: None (occurrence: None)
  Receive Date: 20040329
  Receipt Date: 20040109
  Transmission Date: 20041129
  Serious: No
  Sender: FDA-Public Use
  Company Number: USA040156203

PATIENT
  Age: 8 Year
  Sex: Male
  Weight: 45 kg

DRUGS (1)
  1. STRATTERA [Suspect]
     Dosage: 40 MG/ AT BEDTIME
     Dates: start: 20040105

REACTIONS (3)
  - FATIGUE [None]
  - RETCHING [None]
  - VOMITING [None]
